FAERS Safety Report 10030407 (Version 1)
Quarter: 2014Q1

REPORT INFORMATION
  Report Type: Spontaneous
  Country: US (occurrence: US)
  Receive Date: 20140323
  Receipt Date: 20140323
  Transmission Date: 20141002
  Serious: No
  Sender: FDA-Public Use
  Company Number: US-ALLERGAN-1312997US

PATIENT
  Sex: Female

DRUGS (6)
  1. LATISSE 0.03% [Suspect]
     Indication: GROWTH OF EYELASHES
     Dosage: 2 GTT, QHS
     Route: 061
  2. FISH OIL [Concomitant]
     Indication: NUTRITIONAL SUPPLEMENTATION
     Route: 048
  3. VITAMIN D [Concomitant]
     Indication: NUTRITIONAL SUPPLEMENTATION
     Dosage: UNK
     Route: 048
  4. MAGNESIUM [Concomitant]
     Indication: NUTRITIONAL SUPPLEMENTATION
     Dosage: UNK
  5. TRAMADOL [Concomitant]
     Indication: OSTEOARTHRITIS
     Dosage: UNK UNK, QHS
     Route: 048
  6. NAPROXEN [Concomitant]
     Indication: OSTEOARTHRITIS
     Dosage: UNK UNK, QHS
     Route: 048

REACTIONS (3)
  - Therapeutic response decreased [Unknown]
  - Vision blurred [Unknown]
  - Blepharal pigmentation [Unknown]
